FAERS Safety Report 20956626 (Version 6)
Quarter: 2023Q1

REPORT INFORMATION
  Report Type: Spontaneous
  Country: US (occurrence: US)
  Receive Date: 20220614
  Receipt Date: 20230323
  Transmission Date: 20230418
  Serious: Yes (Hospitalization)
  Sender: FDA-Public Use
  Company Number: US-BRISTOL-MYERS SQUIBB COMPANY-2022-045710

PATIENT
  Age: 62 Year
  Sex: Female

DRUGS (6)
  1. POMALYST [Suspect]
     Active Substance: POMALIDOMIDE
     Indication: Plasma cell myeloma
     Route: 048
  2. POMALYST [Suspect]
     Active Substance: POMALIDOMIDE
     Dosage: DAILY
     Route: 048
     Dates: start: 20210410
  3. POMALYST [Suspect]
     Active Substance: POMALIDOMIDE
     Dosage: ON AN EMPTY STOMACH. DO NOT BREAK, CHEW OR OPEN CAPSULE
     Route: 048
     Dates: start: 20210110
  4. POMALYST [Suspect]
     Active Substance: POMALIDOMIDE
     Dosage: TAKE 1 CAPSULE BY MOUTH ON AN EMPTY STOMACH DAILY. DO NOT BREAK, CHEW OR OPEN CAPSULES
     Route: 048
  5. POMALYST [Suspect]
     Active Substance: POMALIDOMIDE
     Dosage: TAKE 1 CAPSULE BY MOUTH ON AN EMPTY STOMACH DAILY. DO NOT BREAK, CHEW OR OPEN CAPSULES
     Route: 048
     Dates: end: 20230313
  6. MIDODRINE [Concomitant]
     Active Substance: MIDODRINE
     Indication: Product used for unknown indication

REACTIONS (2)
  - Product dose omission issue [Unknown]
  - Malaise [Recovered/Resolved]
